FAERS Safety Report 5908959-8 (Version None)
Quarter: 2008Q4

REPORT INFORMATION
  Report Type: 
  Country: None (occurrence: None)
  Receive Date: 20081006
  Receipt Date: 20081001
  Transmission Date: 20090506
  Serious: Yes (Other)
  Sender: FDA-Public Use
  Company Number: GB-ALLERGAN-0812272US

PATIENT
  Sex: Female

DRUGS (1)
  1. BOTOX [Suspect]
     Indication: SKIN WRINKLING
     Dosage: 4.5 UNITS, SINGLE
     Route: 030
     Dates: start: 20080926, end: 20080926

REACTIONS (2)
  - HEADACHE [None]
  - MIGRAINE [None]
